FAERS Safety Report 6753196-0 (Version None)
Quarter: 2010Q2

REPORT INFORMATION
  Report Type: 
  Country: None (occurrence: None)
  Receive Date: 20100603
  Receipt Date: 20100524
  Transmission Date: 20101027
  Serious: Yes (Hospitalization)
  Sender: FDA-Public Use
  Company Number: US-PFIZER INC-2010035045

PATIENT
  Sex: Female
  Weight: 112.47 kg

DRUGS (7)
  1. CHANTIX [Suspect]
     Indication: SMOKING CESSATION THERAPY
     Dosage: 0.5 MG, 2X/DAY
     Route: 048
     Dates: start: 20100127
  2. SYNTHROID [Concomitant]
     Dosage: UNK
  3. TRICOR [Concomitant]
     Indication: BLOOD CHOLESTEROL INCREASED
     Dosage: UNK
  4. PAXIL [Concomitant]
     Dosage: UNK
  5. LAMICTAL [Concomitant]
     Dosage: UNK
  6. DILAUDID [Concomitant]
     Dosage: UNK
  7. FLEXERIL [Concomitant]
     Dosage: UNK

REACTIONS (1)
  - PNEUMONIA [None]
